FAERS Safety Report 20245331 (Version 1)
Quarter: 2021Q4

REPORT INFORMATION
  Report Type: Report from Study
  Country: MA (occurrence: MA)
  Receive Date: 20211229
  Receipt Date: 20211229
  Transmission Date: 20220303
  Serious: Yes (Other)
  Sender: FDA-Public Use
  Company Number: MA-NOVARTISPH-NVSC2021MA192222

PATIENT
  Sex: Female

DRUGS (2)
  1. GILENYA [Suspect]
     Active Substance: FINGOLIMOD HYDROCHLORIDE
     Indication: Multiple sclerosis
     Dosage: 0.5 MG, QD
     Route: 048
     Dates: start: 2018
  2. MAGNESIUM [Concomitant]
     Active Substance: MAGNESIUM
     Indication: Product used for unknown indication
     Dosage: UNK
     Route: 065

REACTIONS (11)
  - Multiple sclerosis relapse [Recovering/Resolving]
  - Discomfort [Unknown]
  - Eye pain [Unknown]
  - Asthenopia [Recovering/Resolving]
  - Dizziness [Unknown]
  - Urinary incontinence [Unknown]
  - Decreased appetite [Recovering/Resolving]
  - Skin discolouration [Recovering/Resolving]
  - Asthenia [Recovering/Resolving]
  - Vision blurred [Unknown]
  - Fatigue [Unknown]
